FAERS Safety Report 8031985-2 (Version None)
Quarter: 2012Q1

REPORT INFORMATION
  Report Type: 
  Country: None (occurrence: None)
  Receive Date: 20120109
  Receipt Date: 20110420
  Transmission Date: 20120608
  Serious: No
  Sender: FDA-Public Use
  Company Number: US-ABBOTT-11P-163-0721846-00

PATIENT
  Age: 20 Year
  Sex: Female

DRUGS (2)
  1. VICODIN [Suspect]
     Indication: PAIN
  2. VICODIN [Suspect]
     Indication: ROAD TRAFFIC ACCIDENT

REACTIONS (1)
  - DRUG DEPENDENCE [None]
